FAERS Safety Report 13251230 (Version 2)
Quarter: 2019Q4

REPORT INFORMATION
  Report Type: Spontaneous
  Country: US (occurrence: US)
  Receive Date: 20170220
  Receipt Date: 20191021
  Transmission Date: 20200122
  Serious: Yes (Other)
  Sender: FDA-Public Use
  Company Number: US-TEVA-740637ACC

PATIENT
  Sex: Female

DRUGS (1)
  1. PARAGARD T 380A [Suspect]
     Active Substance: COPPER
     Indication: CONTRACEPTION
     Dates: start: 2010

REACTIONS (5)
  - Maternal exposure during pregnancy [Unknown]
  - Device breakage [Unknown]
  - Pregnancy on contraceptive [Unknown]
  - Device expulsion [Unknown]
  - Abortion induced [Unknown]

NARRATIVE: CASE EVENT DATE: 20151029
